FAERS Safety Report 24328506 (Version 1)
Quarter: 2024Q3

REPORT INFORMATION
  Report Type: Spontaneous
  Country: US (occurrence: US)
  Receive Date: 20240917
  Receipt Date: 20240917
  Transmission Date: 20241017
  Serious: Yes (Other)
  Sender: NOVARTIS
  Company Number: US-002147023-NVSC2024US183677

PATIENT
  Sex: Female

DRUGS (1)
  1. IPTACOPAN [Suspect]
     Active Substance: IPTACOPAN
     Indication: Haemolysis
     Dosage: 200 MG, BID
     Route: 065
     Dates: start: 202406

REACTIONS (1)
  - Herpes simplex meningitis [Recovering/Resolving]
